FAERS Safety Report 5912140-6 (Version None)
Quarter: 2008Q4

REPORT INFORMATION
  Report Type: 
  Country: None (occurrence: None)
  Receive Date: 20081003
  Receipt Date: 20081003
  Transmission Date: 20090506
  Serious: Yes (Hospitalization)
  Sender: FDA-Public Use
  Company Number: None

PATIENT
  Age: 64 Year
  Sex: Male
  Weight: 101.36 kg

DRUGS (1)
  1. AMOXICILLIN + CLAVULANATE POTASSIUM [Suspect]
     Dosage: 500/125 MG BID PO
     Route: 048
     Dates: start: 20080823, end: 20080907

REACTIONS (2)
  - ABDOMINAL PAIN [None]
  - DIARRHOEA [None]
